FAERS Safety Report 25429890 (Version 2)
Quarter: 2025Q3

REPORT INFORMATION
  Report Type: Report from Study
  Country: GB (occurrence: GB)
  Receive Date: 20250612
  Receipt Date: 20250827
  Transmission Date: 20251021
  Serious: Yes (Hospitalization, Other)
  Sender: MERCK SHARP & DOHME LLC
  Company Number: GB-ASTRAZENECA-202502GLO025957GB

PATIENT
  Age: 37 Year
  Sex: Female

DRUGS (17)
  1. PEMBROLIZUMAB [Suspect]
     Active Substance: PEMBROLIZUMAB
     Indication: Triple negative breast cancer
     Dosage: 200 MG, ONCE EVERY 3 WK
     Route: 050
     Dates: start: 20241120, end: 20250319
  2. DIHYDROCODEINE BITARTRATE [Concomitant]
     Active Substance: DIHYDROCODEINE BITARTRATE
     Indication: Cancer pain
     Route: 050
     Dates: start: 20241008
  3. CYCLIZINE HYDROCHLORIDE [Concomitant]
     Active Substance: CYCLIZINE HYDROCHLORIDE
     Indication: Nausea
     Route: 050
     Dates: start: 20250301
  4. EPIRUBICIN [Suspect]
     Active Substance: EPIRUBICIN
     Indication: Triple negative breast cancer
     Route: 050
  5. ONDANSETRON [ONDANSETRON HYDROCHLORIDE DIHYDRATE] [Concomitant]
     Indication: Nausea
     Route: 050
     Dates: start: 20241121
  6. VANCOMYCIN HYDROCHLORIDE [Concomitant]
     Active Substance: VANCOMYCIN HYDROCHLORIDE
     Indication: Febrile neutropenia
     Dosage: 3000 MG, QD (1500 MILLIGRAM, BID)
     Route: 050
     Dates: start: 20250227
  7. CYCLOPHOSPHAMIDE [Suspect]
     Active Substance: CYCLOPHOSPHAMIDE
     Indication: Triple negative breast cancer
     Route: 050
     Dates: start: 20250319, end: 20250319
  8. CYCLOPHOSPHAMIDE [Suspect]
     Active Substance: CYCLOPHOSPHAMIDE
     Indication: Triple negative breast cancer
     Route: 050
     Dates: start: 20250219, end: 20250219
  9. CARBOPLATIN [Suspect]
     Active Substance: CARBOPLATIN
     Indication: Triple negative breast cancer
     Route: 050
     Dates: start: 20241120, end: 20241230
  10. CARBOPLATIN [Suspect]
     Active Substance: CARBOPLATIN
     Indication: Triple negative breast cancer
     Route: 050
     Dates: start: 20250129, end: 20250129
  11. PIPERACILLIN [PIPERACILLIN SODIUM] [Concomitant]
     Indication: Febrile neutropenia
     Dosage: 4.5 MILLIGRAM, 4 TIMES PER DAY
     Route: 050
     Dates: start: 20250226
  12. MAGNESIUM ASPARTATE [Concomitant]
     Active Substance: MAGNESIUM ASPARTATE
     Indication: Blood magnesium decreased
     Dosage: 1 OTHER, BID
     Route: 050
     Dates: start: 20250304
  13. FLUCONAZOLE [Concomitant]
     Active Substance: FLUCONAZOLE
     Indication: Oesophagitis
     Dosage: 100 MG, QD
     Route: 050
     Dates: start: 20250303
  14. DEXAMETHASONE SODIUM PHOSPHATE [Concomitant]
     Active Substance: DEXAMETHASONE SODIUM PHOSPHATE
     Indication: Premedication
     Dosage: 20 MG, ONCE EVERY 1 WK
     Route: 050
     Dates: start: 20241120
  15. DOMPERIDONE [Concomitant]
     Active Substance: DOMPERIDONE
     Indication: Nausea
     Route: 050
     Dates: start: 20241120
  16. PACLITAXEL [Suspect]
     Active Substance: PACLITAXEL
     Indication: Triple negative breast cancer
     Route: 050
     Dates: start: 20241120, end: 20250212
  17. CHLORPHENAMINE [CHLORPHENAMINE MALEATE] [Concomitant]
     Indication: Premedication
     Dosage: 10 MG, ONCE EVERY 1 WK
     Route: 050
     Dates: start: 20241120

REACTIONS (1)
  - Febrile neutropenia [Recovered/Resolved]

NARRATIVE: CASE EVENT DATE: 20250226
